FAERS Safety Report 6992404-8 (Version None)
Quarter: 2010Q3

REPORT INFORMATION
  Report Type: 
  Country: None (occurrence: None)
  Receive Date: 20100916
  Receipt Date: 20100916
  Transmission Date: 20110219
  Serious: No
  Sender: FDA-Public Use
  Company Number: None

PATIENT
  Age: 68 Year
  Sex: Male

DRUGS (2)
  1. ARIPIPRAZOLE [Suspect]
     Indication: PSYCHOTIC DISORDER
     Dosage: 30 MG DAILY PO
     Route: 048
     Dates: start: 20091001, end: 20091002
  2. HALOPERIDOL 2.5 MG [Suspect]
     Indication: DELUSION
     Dosage: 2.5 MG DAILY PO
     Route: 048
     Dates: start: 20091106, end: 20091109

REACTIONS (1)
  - AKATHISIA [None]
